FAERS Safety Report 22250483 (Version 2)
Quarter: 2023Q2

REPORT INFORMATION
  Report Type: Report from Study
  Country: CA (occurrence: CA)
  Receive Date: 20230425
  Receipt Date: 20230502
  Transmission Date: 20230722
  Serious: Yes (Hospitalization, Other)
  Sender: FDA-Public Use
  Company Number: CA-JNJFOC-20230427142

PATIENT
  Age: 45 Year
  Sex: Female
  Weight: 95 kg

DRUGS (2)
  1. REMICADE [Suspect]
     Active Substance: INFLIXIMAB
     Indication: Colitis ulcerative
     Dosage: THERAPY START DATE ALSO REPORTED, 07-MAY-2009, DOSE -475 MG
     Route: 041
     Dates: start: 20090311, end: 20230214
  2. REMICADE [Suspect]
     Active Substance: INFLIXIMAB
     Dosage: STAT THEN RETURN TO 5MG/KG  IV EVERY 6 WEEKS
     Route: 041

REACTIONS (4)
  - Hospitalisation [Unknown]
  - Colitis ulcerative [Unknown]
  - COVID-19 [Not Recovered/Not Resolved]
  - Extra dose administered [Unknown]

NARRATIVE: CASE EVENT DATE: 20230401
